FAERS Safety Report 5113500-6 (Version None)
Quarter: 2006Q3

REPORT INFORMATION
  Report Type: 
  Country: None (occurrence: None)
  Receive Date: 20060921
  Receipt Date: 20060908
  Transmission Date: 20061208
  Serious: Yes (Hospitalization, Other)
  Sender: FDA-Public Use
  Company Number: 2006110566

PATIENT
  Age: 57 Year
  Sex: Male
  Weight: 95.709 kg

DRUGS (6)
  1. SOMAVERT [Suspect]
     Indication: ACROMEGALY
     Dosage: 40 MG), SUBCUTANEOUS
     Route: 058
     Dates: start: 20060804, end: 20060804
  2. SIMVASTATIN [Concomitant]
  3. ANDROGEL [Concomitant]
  4. LIPITOR [Concomitant]
  5. TOPROL-XL [Concomitant]
  6. HYDROCHLOROTHIAZIDE [Concomitant]

REACTIONS (3)
  - BLOOD GLUCOSE INCREASED [None]
  - DRUG HYPERSENSITIVITY [None]
  - INSULIN-LIKE GROWTH FACTOR DECREASED [None]
